FAERS Safety Report 10042037 (Version 2)
Quarter: 2014Q1

REPORT INFORMATION
  Report Type: Spontaneous
  Country: JP (occurrence: JP)
  Receive Date: 20140327
  Receipt Date: 20140327
  Transmission Date: 20141002
  Serious: Yes (Hospitalization)
  Sender: FDA-Public Use
  Company Number: JP-BAYER-2014-030076

PATIENT
  Age: 39 Year
  Sex: Female
  Weight: 81 kg

DRUGS (1)
  1. YAZ [Suspect]
     Indication: DYSMENORRHOEA
     Dosage: 1 DF, QD
     Route: 048
     Dates: start: 20130924, end: 20140208

REACTIONS (5)
  - Pleurisy [Recovered/Resolved]
  - Pulmonary embolism [Recovered/Resolved]
  - Dyspnoea [Recovered/Resolved]
  - Chest pain [Recovered/Resolved]
  - Pleural effusion [Recovered/Resolved]
